FAERS Safety Report 11087398 (Version 2)
Quarter: 2015Q2

REPORT INFORMATION
  Report Type: Report from Study
  Country: JP (occurrence: JP)
  Receive Date: 20150504
  Receipt Date: 20150526
  Transmission Date: 20150821
  Serious: No
  Sender: FDA-Public Use
  Company Number: JP-SA-2015SA048938

PATIENT
  Age: 78 Year
  Sex: Male

DRUGS (2)
  1. G-LASTA [Concomitant]
     Active Substance: PEGFILGRASTIM
     Indication: PROPHYLAXIS
     Dates: start: 20150411
  2. JEVTANA [Suspect]
     Active Substance: CABAZITAXEL
     Indication: PROSTATE CANCER
     Route: 042
     Dates: start: 20150410, end: 20150410

REACTIONS (6)
  - Diarrhoea [Recovered/Resolved]
  - Febrile neutropenia [Recovered/Resolved]
  - Vomiting [Recovered/Resolved]
  - Febrile neutropenia [Recovered/Resolved]
  - Platelet count decreased [Recovered/Resolved]
  - Blood pressure decreased [Recovered/Resolved]

NARRATIVE: CASE EVENT DATE: 20150415
